FAERS Safety Report 25138822 (Version 1)
Quarter: 2025Q1

REPORT INFORMATION
  Report Type: Spontaneous
  Country: PT (occurrence: PT)
  Receive Date: 20250331
  Receipt Date: 20250331
  Transmission Date: 20250409
  Serious: Yes (Hospitalization)
  Sender: ALEXION PHARMACEUTICALS
  Company Number: PT-AstraZeneca-CH-00835407AMP

PATIENT
  Age: 48 Year

DRUGS (1)
  1. BUDESONIDE\FORMOTEROL\GLYCOPYRRONIUM [Suspect]
     Active Substance: BUDESONIDE\FORMOTEROL\GLYCOPYRRONIUM
     Indication: Dyspnoea
     Route: 065

REACTIONS (5)
  - Off label use [Recovered/Resolved]
  - Drug dose omission by device [Recovered/Resolved]
  - Oxygen saturation decreased [Unknown]
  - Illness [Unknown]
  - Device delivery system issue [Unknown]
